FAERS Safety Report 8020377-8 (Version None)
Quarter: 2012Q1

REPORT INFORMATION
  Report Type: 
  Country: None (occurrence: None)
  Receive Date: 20120103
  Receipt Date: 20111221
  Transmission Date: 20120608
  Serious: Yes (Death, Hospitalization, Other)
  Sender: FDA-Public Use
  Company Number: US-ELI_LILLY_AND_COMPANY-US201108006422

PATIENT
  Sex: Female

DRUGS (28)
  1. LEVATOL [Concomitant]
  2. AMLODIPINE [Concomitant]
     Dosage: UNK, QD
  3. PREDNISONE TAB [Concomitant]
     Indication: ARTERITIS
     Dosage: 7.5 MG, QD
  4. PREDNISONE TAB [Concomitant]
     Dosage: 40 MG, UNK
  5. LABETALOL HCL [Concomitant]
     Dosage: UNK, TID
  6. NEURONTIN [Concomitant]
     Dosage: UNK, QD
  7. CYCLOBENZAPRINE [Concomitant]
  8. FORTEO [Suspect]
     Dosage: 20 UG, QD
     Route: 065
     Dates: start: 20111101
  9. FORTEO [Suspect]
     Dosage: 20 UG, QD
  10. BACTRIM [Concomitant]
     Dosage: UNK, QD
  11. CALCIUM PLUS D3 [Concomitant]
     Dosage: UNK, BID
  12. FORTEO [Suspect]
     Indication: OSTEOPOROSIS
     Dosage: 20 UG, QD
     Route: 065
     Dates: start: 20110730
  13. PROTOZOL                           /00012501/ [Concomitant]
  14. METOPROLOL TARTRATE [Concomitant]
  15. FORTEO [Suspect]
     Dosage: 20 UG, QD
     Route: 065
     Dates: end: 20111101
  16. ERGOCALCIFEROL [Concomitant]
     Dosage: UNK, QD
  17. HYDROCHLOROTHIAZID [Concomitant]
  18. SULFAMETHOXAZOLE AND TRIMETHOPRIM DOUBLE STRENGTH [Concomitant]
  19. FUROSEMIDE [Concomitant]
  20. OXYCONTIN [Concomitant]
     Dosage: UNK UNK, PRN
  21. SIMVASTATIN [Concomitant]
     Dosage: 40 MG, UNK
  22. HYDROXYZINE [Concomitant]
  23. HYDRALAZINE HCL [Concomitant]
     Dosage: UNK, TID
  24. VITAMIN B-12 [Concomitant]
     Dosage: UNK, QD
  25. OXYCODONE HCL AND ACETAMINOPHEN [Concomitant]
  26. CALCIUM D3 [Concomitant]
  27. ZOCOR [Concomitant]
     Dosage: UNK, QD
  28. VITAMIN D [Concomitant]

REACTIONS (10)
  - OVERDOSE [None]
  - DRUG DOSE OMISSION [None]
  - MOBILITY DECREASED [None]
  - CEREBROVASCULAR ACCIDENT [None]
  - DYSURIA [None]
  - DEATH [None]
  - SPINAL COMPRESSION FRACTURE [None]
  - LETHARGY [None]
  - GASTRIC HAEMORRHAGE [None]
  - INCORRECT DOSE ADMINISTERED BY DEVICE [None]
